FAERS Safety Report 22345123 (Version 2)
Quarter: 2023Q2

REPORT INFORMATION
  Report Type: Report from Study
  Country: US (occurrence: US)
  Receive Date: 20230519
  Receipt Date: 20230525
  Transmission Date: 20230721
  Serious: Yes (Hospitalization, Other)
  Sender: FDA-Public Use
  Company Number: US-EXELIXIS-CABO-23062802

PATIENT
  Age: 74 Year
  Sex: Male

DRUGS (24)
  1. CABOMETYX [Suspect]
     Active Substance: CABOZANTINIB S-MALATE
     Indication: Renal cancer
     Dosage: 60 MG, QD
     Route: 048
     Dates: start: 20230405, end: 202304
  2. CABOMETYX [Suspect]
     Active Substance: CABOZANTINIB S-MALATE
     Dosage: UNK
     Dates: start: 202304
  3. CABOMETYX [Suspect]
     Active Substance: CABOZANTINIB S-MALATE
     Dosage: 60 MG, QD
     Route: 048
  4. CABOMETYX [Suspect]
     Active Substance: CABOZANTINIB S-MALATE
     Dosage: 60 MG, QD
     Route: 048
     Dates: start: 202305
  5. AMOXICILLIN [Concomitant]
     Active Substance: AMOXICILLIN
  6. AMIODARONE HYDROCHLORIDE [Concomitant]
     Active Substance: AMIODARONE HYDROCHLORIDE
  7. ASPIRIN [Concomitant]
     Active Substance: ASPIRIN
  8. ATORVASTATIN [Concomitant]
     Active Substance: ATORVASTATIN
  9. BACTRIM DS [Concomitant]
     Active Substance: SULFAMETHOXAZOLE\TRIMETHOPRIM
  10. CALCIUM [Concomitant]
     Active Substance: CALCIUM
  11. COLACE [Concomitant]
     Active Substance: DOCUSATE SODIUM
  12. FUROSEMIDE [Concomitant]
     Active Substance: FUROSEMIDE
  13. GABAPENTIN [Concomitant]
     Active Substance: GABAPENTIN
  14. METOPROLOL SUCCINATE [Concomitant]
     Active Substance: METOPROLOL SUCCINATE
  15. PREDNISONE [Concomitant]
     Active Substance: PREDNISONE
  16. MINERALS\VITAMINS [Concomitant]
     Active Substance: MINERALS\VITAMINS
  17. PROGRAF [Concomitant]
     Active Substance: TACROLIMUS
  18. SPIRIVA [Concomitant]
     Active Substance: TIOTROPIUM BROMIDE MONOHYDRATE
  19. SYMBICORT [Concomitant]
     Active Substance: BUDESONIDE\FORMOTEROL FUMARATE DIHYDRATE
  20. TRADJENTA [Concomitant]
     Active Substance: LINAGLIPTIN
  21. VENTOLIN HFA [Concomitant]
     Active Substance: ALBUTEROL SULFATE
  22. VITAMIN C [Concomitant]
     Active Substance: ASCORBIC ACID
  23. VITAMIN D3 [Concomitant]
     Active Substance: CHOLECALCIFEROL
  24. WARFARIN SODIUM [Concomitant]
     Active Substance: WARFARIN SODIUM

REACTIONS (5)
  - Heart rate increased [Recovered/Resolved]
  - Pneumonia [Not Recovered/Not Resolved]
  - International normalised ratio increased [Recovered/Resolved]
  - Diarrhoea [Not Recovered/Not Resolved]
  - Nasopharyngitis [Not Recovered/Not Resolved]

NARRATIVE: CASE EVENT DATE: 20230401
